FAERS Safety Report 22062344 (Version 1)
Quarter: 2023Q1

REPORT INFORMATION
  Report Type: Spontaneous
  Country: IT (occurrence: IT)
  Receive Date: 20230305
  Receipt Date: 20230305
  Transmission Date: 20230417
  Serious: Yes (Other)
  Sender: FDA-Public Use
  Company Number: IT-ELI_LILLY_AND_COMPANY-IT202302005258

PATIENT
  Age: 64 Year

DRUGS (5)
  1. PEMETREXED [Suspect]
     Active Substance: PEMETREXED
     Indication: Pleural mesothelioma
     Dosage: UNK, CYCLICAL
     Route: 065
     Dates: start: 20220429, end: 20220826
  2. CARBOPLATIN [Suspect]
     Active Substance: CARBOPLATIN
     Indication: Pleural mesothelioma malignant
     Dosage: UNK, CYCLICAL
     Route: 065
     Dates: start: 20220429, end: 20220826
  3. ACETAMINOPHEN\OXYCODONE HYDROCHLORIDE [Concomitant]
     Active Substance: ACETAMINOPHEN\OXYCODONE HYDROCHLORIDE
     Indication: Product used for unknown indication
     Dosage: 10 MG, PRN
     Route: 065
  4. INSULIN NOS [Concomitant]
     Active Substance: INSULIN NOS
     Indication: Product used for unknown indication
     Dosage: UNK
     Route: 065
  5. Oxycodone/naloxone g.l. [Concomitant]
     Indication: Product used for unknown indication
     Dosage: UNK, ONCE A DAY
     Route: 065

REACTIONS (1)
  - Malignant neoplasm progression [Unknown]
